FAERS Safety Report 5487450-X (Version None)
Quarter: 2007Q4

REPORT INFORMATION
  Report Type: 
  Country: None (occurrence: None)
  Receive Date: 20071015
  Receipt Date: 20071004
  Transmission Date: 20080405
  Serious: Yes (Hospitalization)
  Sender: FDA-Public Use
  Company Number: GXKR2007PL07110

PATIENT
  Age: 16 Year
  Sex: Female
  Weight: 50 kg

DRUGS (1)
  1. CEFUROXIME [Suspect]
     Indication: TONSILLITIS
     Dosage: 0.5 G, BID, ORAL
     Route: 048
     Dates: start: 20070717, end: 20070727

REACTIONS (7)
  - AUTOIMMUNE HEPATITIS [None]
  - BLOOD BILIRUBIN INCREASED [None]
  - HEPATOMEGALY [None]
  - JAUNDICE [None]
  - PURPURA [None]
  - SKIN DISCOLOURATION [None]
  - TRANSAMINASES INCREASED [None]
